FAERS Safety Report 9457980 (Version 1)
Quarter: 2013Q3

REPORT INFORMATION
  Report Type: Spontaneous
  Country: US (occurrence: US)
  Receive Date: 20130814
  Receipt Date: 20130814
  Transmission Date: 20140515
  Serious: No
  Sender: FDA-Public Use
  Company Number: US-009507513-1308USA004780

PATIENT
  Sex: Female

DRUGS (9)
  1. TRUSOPT [Suspect]
     Dosage: UNK
     Dates: end: 201307
  2. TRUSOPT [Suspect]
     Dosage: UNK
     Dates: start: 20130725
  3. PREDNISOLONE [Suspect]
     Indication: POSTOPERATIVE CARE
     Dosage: UNK
     Dates: start: 20130725
  4. VIGAMOX [Suspect]
     Indication: POSTOPERATIVE CARE
     Dosage: UNK UNK, QID
     Dates: start: 20130725
  5. TRAVATAN [Suspect]
     Dosage: UNK
     Dates: start: 20130726
  6. LODIPIN [Concomitant]
     Dosage: UNK
  7. LODIPIN [Concomitant]
     Dosage: UNK
     Dates: start: 20130725
  8. BROMFENAC SODIUM [Concomitant]
     Indication: POSTOPERATIVE CARE
  9. NEOMYCIN [Concomitant]
     Indication: POSTOPERATIVE CARE

REACTIONS (4)
  - Mydriasis [Unknown]
  - Halo vision [Unknown]
  - Rash [Unknown]
  - Corneal transplant [Unknown]
